FAERS Safety Report 23883347 (Version 2)
Quarter: 2024Q2

REPORT INFORMATION
  Report Type: Spontaneous
  Country: CN (occurrence: CN)
  Receive Date: 20240522
  Receipt Date: 20240529
  Transmission Date: 20240716
  Serious: Yes (Life-Threatening, Other)
  Sender: FDA-Public Use
  Company Number: CN-ALKEM LABORATORIES LIMITED-CN-ALKEM-2024-10278

PATIENT
  Age: 52 Year
  Sex: Female

DRUGS (1)
  1. AMLODIPINE BESYLATE [Suspect]
     Active Substance: AMLODIPINE BESYLATE
     Indication: Product used for unknown indication
     Dosage: 450 GRAM, (EQUIVALENT TO 90 STANDARD 5 MG TABLETS)
     Route: 048

REACTIONS (6)
  - Cardiac failure high output [Recovered/Resolved]
  - Pulmonary hypertension [Unknown]
  - Shock [Unknown]
  - Liver injury [Recovered/Resolved]
  - Poisoning [Recovered/Resolved]
  - Overdose [Unknown]
